FAERS Safety Report 21834587 (Version 1)
Quarter: 2023Q1

REPORT INFORMATION
  Report Type: Spontaneous
  Country: US (occurrence: None)
  Receive Date: 20230108
  Receipt Date: 20230108
  Transmission Date: 20230417
  Serious: No
  Sender: FDA-Public Use
  Company Number: US-ROCHE-3021771

PATIENT
  Sex: Male

DRUGS (1)
  1. HEMLIBRA [Suspect]
     Active Substance: EMICIZUMAB-KXWH
     Indication: Factor VIII deficiency
     Dosage: 107MG/0.7ML
     Route: 058
     Dates: start: 20210915

REACTIONS (3)
  - Nasopharyngitis [Unknown]
  - Hyperhidrosis [Unknown]
  - Nausea [Unknown]
